FAERS Safety Report 10088280 (Version 1)
Quarter: 2014Q2

REPORT INFORMATION
  Report Type: Spontaneous
  Country: TW (occurrence: TW)
  Receive Date: 20140421
  Receipt Date: 20140421
  Transmission Date: 20141212
  Serious: Yes (Hospitalization)
  Sender: FDA-Public Use
  Company Number: TW-ACCORD-023189

PATIENT
  Age: 58 Year
  Sex: Male

DRUGS (2)
  1. QUETIAPINE [Suspect]
     Indication: SCHIZOPHRENIA
     Dosage: RECEIVED FROM 10 YEARS.
  2. VALPROIC ACID [Suspect]
     Indication: SCHIZOPHRENIA
     Dosage: RECEIVED FROM 10 YEARS.

REACTIONS (1)
  - Pancreatitis acute [Recovered/Resolved]
